FAERS Safety Report 11146146 (Version 2)
Quarter: 2015Q3

REPORT INFORMATION
  Report Type: Spontaneous
  Country: AU (occurrence: None)
  Receive Date: 20150526
  Receipt Date: 20150731
  Transmission Date: 20151125
  Serious: Yes (Hospitalization)
  Sender: FDA-Public Use
  Company Number: TIR-04581

PATIENT
  Age: 18 Year
  Sex: Female

DRUGS (8)
  1. GLICLAZIDE (GLICLAZIDE) [Suspect]
     Active Substance: GLICLAZIDE
  2. OMEPRAZOLE (OMEPRAZOLE) [Suspect]
     Active Substance: OMEPRAZOLE
  3. METFORMIN [Suspect]
     Active Substance: METFORMIN HYDROCHLORIDE
  4. IRBESARTAN (IRBESARTAN) [Suspect]
     Active Substance: IRBESARTAN
  5. CARBAMAZEPINE (CARBAMAZEPINE) [Suspect]
     Active Substance: CARBAMAZEPINE
  6. ASPIRIN (ACETYLSALICYLIC ACID) [Suspect]
     Active Substance: ASPIRIN
  7. UNSPECIFIED LEVOTHYROXINE (LEVOTHYROXINE) [Suspect]
     Active Substance: LEVOTHYROXINE
     Indication: PRODUCT USED FOR UNKNOWN INDICATION
  8. ATORVASTATIN (ATORVASTATIN) [Suspect]
     Active Substance: ATORVASTATIN

REACTIONS (6)
  - Hypoglycaemia [None]
  - Overdose [None]
  - Acidosis [None]
  - Hypotension [None]
  - Hyperlactacidaemia [None]
  - Intentional overdose [None]
